FAERS Safety Report 13143821 (Version 4)
Quarter: 2017Q2

REPORT INFORMATION
  Report Type: Report from Study
  Country: US (occurrence: US)
  Receive Date: 20170124
  Receipt Date: 20170517
  Transmission Date: 20170830
  Serious: Yes (Hospitalization)
  Sender: FDA-Public Use
  Company Number: US-JNJFOC-20170119779

PATIENT
  Age: 64 Year
  Sex: Female
  Weight: 58 kg

DRUGS (2)
  1. NIVOLUMAB [Suspect]
     Active Substance: NIVOLUMAB
     Indication: RENAL CANCER METASTATIC
     Route: 042
     Dates: start: 20161130, end: 20161228
  2. IBRUTINIB [Suspect]
     Active Substance: IBRUTINIB
     Indication: RENAL CANCER METASTATIC
     Route: 048
     Dates: start: 20161130, end: 20170106

REACTIONS (2)
  - Anaemia [Recovered/Resolved]
  - Oesophagitis [Recovered/Resolved]

NARRATIVE: CASE EVENT DATE: 20170106
